FAERS Safety Report 17192523 (Version 7)
Quarter: 2020Q1

REPORT INFORMATION
  Report Type: Spontaneous
  Country: US (occurrence: US)
  Receive Date: 20191223
  Receipt Date: 20200302
  Transmission Date: 20200409
  Serious: Yes (Hospitalization, Other)
  Sender: FDA-Public Use
  Company Number: US-CATALYST PHARMACEUTICALS, INC-2019CAT00683

PATIENT
  Sex: Female
  Weight: 44.9 kg

DRUGS (11)
  1. FIRDAPSE [Suspect]
     Active Substance: AMIFAMPRIDINE
     Indication: MYASTHENIC SYNDROME
     Dosage: 20 MG, 4X/DAY
     Route: 048
     Dates: start: 20190424, end: 2019
  2. OXYCODONE [Concomitant]
     Active Substance: OXYCODONE
     Dosage: 30 MG, EVERY 3 HOURS AS NEEDED
  3. FIRDAPSE [Suspect]
     Active Substance: AMIFAMPRIDINE
     Dosage: 10 MG, 2X/DAY
     Route: 048
  4. DOCUSATE [Concomitant]
     Active Substance: DOCUSATE
  5. UNSPECIFIED MEDICATIONS [Suspect]
     Active Substance: UNSPECIFIED INGREDIENT
  6. CLOZAPINE. [Concomitant]
     Active Substance: CLOZAPINE
     Dosage: UNK
     Dates: end: 201912
  7. KEYTRUDA [Concomitant]
     Active Substance: PEMBROLIZUMAB
  8. FIRDAPSE [Suspect]
     Active Substance: AMIFAMPRIDINE
     Dosage: 10 MG, 3-4X/DAY
     Route: 048
     Dates: start: 2019, end: 2020
  9. IMMUNOTHERAPY [Concomitant]
     Dosage: UNK
     Dates: end: 201911
  10. KEPPRA [Concomitant]
     Active Substance: LEVETIRACETAM
  11. FENTANYL. [Concomitant]
     Active Substance: FENTANYL
     Dosage: 1 DOSAGE UNITS, EVERY 72 HOURS
     Route: 061

REACTIONS (12)
  - Emotional distress [Not Recovered/Not Resolved]
  - Malignant neoplasm progression [Not Recovered/Not Resolved]
  - Pain [Unknown]
  - Malnutrition [Unknown]
  - Intentional product use issue [Not Recovered/Not Resolved]
  - Stress [Unknown]
  - Paranoia [Unknown]
  - Confusional state [Unknown]
  - Weight decreased [Recovering/Resolving]
  - Decreased appetite [Unknown]
  - Fear [Unknown]
  - Food refusal [Recovering/Resolving]

NARRATIVE: CASE EVENT DATE: 2019
